FAERS Safety Report 6391007-6 (Version None)
Quarter: 2009Q4

REPORT INFORMATION
  Report Type: 
  Country: None (occurrence: None)
  Receive Date: 20091007
  Receipt Date: 20090930
  Transmission Date: 20100525
  Serious: Yes (Hospitalization)
  Sender: FDA-Public Use
  Company Number: US-BIOGENIDEC-2009BI015931

PATIENT
  Age: 43 Year
  Sex: Female

DRUGS (5)
  1. TYSABRI [Suspect]
     Indication: MULTIPLE SCLEROSIS
     Route: 042
     Dates: start: 20080423
  2. OXYCONTIN [Concomitant]
     Indication: BACK PAIN
     Route: 048
  3. OXYCONTIN [Concomitant]
     Indication: PAIN
     Route: 048
  4. MORPHINE [Concomitant]
     Indication: BACK PAIN
     Route: 048
  5. MORPHINE [Concomitant]
     Indication: PAIN
     Route: 048

REACTIONS (3)
  - ACUTE RESPIRATORY FAILURE [None]
  - CONVULSION [None]
  - OVERDOSE [None]
